FAERS Safety Report 5163936-2 (Version None)
Quarter: 2006Q4

REPORT INFORMATION
  Report Type: 
  Country: None (occurrence: None)
  Receive Date: 20061124
  Receipt Date: 20061114
  Transmission Date: 20070319
  Serious: Yes (Life-Threatening, Hospitalization, Other)
  Sender: FDA-Public Use
  Company Number: 2006091457

PATIENT
  Age: 59 Year
  Sex: Female
  Weight: 56.6996 kg

DRUGS (4)
  1. XANAX [Suspect]
     Indication: ANXIETY
     Dosage: 1.5 MG (0.5 MG, 3 IN 1 D); ORAL
     Dates: start: 20000217, end: 20060719
  2. XANAX [Suspect]
     Indication: PANIC ATTACK
     Dosage: 1.5 MG (0.5 MG, 3 IN 1 D); ORAL
     Dates: start: 20000217, end: 20060719
  3. NEURONTIN [Concomitant]
  4. LORTAB [Concomitant]

REACTIONS (10)
  - ACTIVITIES OF DAILY LIVING IMPAIRED [None]
  - BLOOD PRESSURE INCREASED [None]
  - DEPENDENCE [None]
  - DEPRESSION [None]
  - DRUG WITHDRAWAL SYNDROME [None]
  - HEAD BANGING [None]
  - INSOMNIA [None]
  - ORAL INTAKE REDUCED [None]
  - SCREAMING [None]
  - SUICIDAL IDEATION [None]
